FAERS Safety Report 5046321-3 (Version None)
Quarter: 2006Q2

REPORT INFORMATION
  Report Type: 
  Country: None (occurrence: None)
  Receive Date: 20060629
  Receipt Date: 20060621
  Transmission Date: 20061013
  Serious: Yes (Other)
  Sender: FDA-Public Use
  Company Number: 226073

PATIENT
  Age: 41 Year
  Sex: Female
  Weight: 78 kg

DRUGS (4)
  1. XOLAIR [Suspect]
     Indication: ASTHMA
     Dosage: 150 , Q4W, SUBCUTANEOUS
     Route: 058
     Dates: start: 20060525
  2. STEROIDS NOS (STEROID NOS) [Concomitant]
  3. COMBIVENT [Concomitant]
  4. FLONASE [Concomitant]

REACTIONS (2)
  - HERPES SIMPLEX [None]
  - PRURITUS [None]
